FAERS Safety Report 21312321 (Version 1)
Quarter: 2022Q3

REPORT INFORMATION
  Report Type: Spontaneous
  Country: US (occurrence: None)
  Receive Date: 20220909
  Receipt Date: 20220909
  Transmission Date: 20221027
  Serious: No
  Sender: FDA-Public Use
  Company Number: US-ARIS GLOBAL-202205-0965

PATIENT
  Age: 67 Year
  Sex: Female

DRUGS (22)
  1. OXERVATE [Suspect]
     Active Substance: CENEGERMIN-BKBJ
     Indication: Neurotrophic keratopathy
     Route: 047
     Dates: start: 20220523
  2. LOTEPREDNOL ETABONATE [Concomitant]
     Active Substance: LOTEPREDNOL ETABONATE
  3. CALCIUM [Concomitant]
     Active Substance: CALCIUM
     Dosage: 500(1250)
  4. VITAMIN C [Concomitant]
     Active Substance: ASCORBIC ACID
  5. EYSUVIS [Concomitant]
     Active Substance: LOTEPREDNOL ETABONATE
     Dosage: DROPS SUSPENSION
  6. AJOVY [Concomitant]
     Active Substance: FREMANEZUMAB-VFRM
     Dosage: AUTOINJECTOR
  7. RETAINE MGD [Concomitant]
     Active Substance: LIGHT MINERAL OIL\MINERAL OIL
     Dosage: 0.5 %-0.5%
  8. ACETAMINOPHEN\HYDROCODONE [Concomitant]
     Active Substance: ACETAMINOPHEN\HYDROCODONE
  9. FERROUS SULFATE [Concomitant]
     Active Substance: FERROUS SULFATE
     Dosage: 325(65) MG
  10. FLOMAX [Concomitant]
     Active Substance: TAMSULOSIN HYDROCHLORIDE
  11. PROTONIX [Concomitant]
     Active Substance: PANTOPRAZOLE SODIUM
  12. GENTEAL TEARS [Concomitant]
     Active Substance: DEXTRAN 70\HYPROMELLOSE 2910 (4000 MPA.S)
     Dosage: 0.1%-0.3%
  13. MAGNESIUM [Concomitant]
     Active Substance: MAGNESIUM
  14. LEVOTHYROXINE [Concomitant]
     Active Substance: LEVOTHYROXINE
  15. ATIVAN [Concomitant]
     Active Substance: LORAZEPAM
  16. PREDNISONE [Concomitant]
     Active Substance: PREDNISONE
  17. RESTASIS [Concomitant]
     Active Substance: CYCLOSPORINE
  18. XIIDRA [Concomitant]
     Active Substance: LIFITEGRAST
  19. ENBREL [Concomitant]
     Active Substance: ETANERCEPT
     Dosage: 50 MG/ML SYRINGE
  20. FISH OIL [Concomitant]
     Active Substance: FISH OIL
     Dosage: 100-160 MG
  21. CELEBREX [Concomitant]
     Active Substance: CELECOXIB
  22. PLAVIX [Concomitant]
     Active Substance: CLOPIDOGREL BISULFATE

REACTIONS (2)
  - Ocular discomfort [Unknown]
  - Device use issue [Unknown]

NARRATIVE: CASE EVENT DATE: 20220523
